FAERS Safety Report 9377829 (Version 1)
Quarter: 2013Q3

REPORT INFORMATION
  Report Type: Spontaneous
  Country: US (occurrence: US)
  Receive Date: 20130701
  Receipt Date: 20130701
  Transmission Date: 20140515
  Serious: No
  Sender: FDA-Public Use
  Company Number: US-GLAXOSMITHKLINE-A1019337A

PATIENT
  Sex: Female

DRUGS (1)
  1. IMITREX [Suspect]
     Dosage: 1TAB UNKNOWN
     Route: 065

REACTIONS (4)
  - Chest pain [Unknown]
  - Dyspnoea [Unknown]
  - Hypoaesthesia [Unknown]
  - Paraesthesia [Unknown]
